FAERS Safety Report 13841236 (Version 9)
Quarter: 2017Q4

REPORT INFORMATION
  Report Type: Spontaneous
  Country: FR (occurrence: FR)
  Receive Date: 20170807
  Receipt Date: 20171023
  Transmission Date: 20180320
  Serious: Yes (Other)
  Sender: FDA-Public Use
  Company Number: FR-009507513-1708FRA002801

PATIENT
  Sex: Female
  Weight: 57 kg

DRUGS (1)
  1. NEXPLANON [Suspect]
     Active Substance: ETONOGESTREL
     Dosage: 1 IMPLANT,  IN THE INTERNAL FACE OF THE ARM, IN THE GROOVE BETWEEN THE BICEPS AND TRICEPS
     Route: 059
     Dates: start: 20170202

REACTIONS (12)
  - Complication of device removal [Not Recovered/Not Resolved]
  - Menorrhagia [Unknown]
  - Device deployment issue [Not Recovered/Not Resolved]
  - Device embolisation [Not Recovered/Not Resolved]
  - Depressed mood [Unknown]
  - Surgery [Not Recovered/Not Resolved]
  - Fatigue [Unknown]
  - Metrorrhagia [Unknown]
  - Device dislocation [Not Recovered/Not Resolved]
  - Device difficult to use [Not Recovered/Not Resolved]
  - Complication associated with device [Recovered/Resolved]
  - Wrong technique in product usage process [Unknown]

NARRATIVE: CASE EVENT DATE: 2017
